FAERS Safety Report 7321240-8 (Version None)
Quarter: 2011Q1

REPORT INFORMATION
  Report Type: 
  Country: None (occurrence: None)
  Receive Date: 20110228
  Receipt Date: 20110222
  Transmission Date: 20110831
  Serious: Yes (Death)
  Sender: FDA-Public Use
  Company Number: NL-ASTRAZENECA-2011SE09867

PATIENT
  Age: 34802 Day
  Sex: Male

DRUGS (1)
  1. GOSERELINE [Suspect]
     Route: 058
     Dates: start: 20081201, end: 20101201

REACTIONS (1)
  - DEATH [None]
